FAERS Safety Report 12289364 (Version 3)
Quarter: 2016Q2

REPORT INFORMATION
  Report Type: Spontaneous
  Country: ES (occurrence: ES)
  Receive Date: 20160421
  Receipt Date: 20160512
  Transmission Date: 20160815
  Serious: Yes (Other)
  Sender: FDA-Public Use
  Company Number: ES-SUN PHARMACEUTICAL INDUSTRIES LTD-2016R1-115285

PATIENT
  Age: 76 Year
  Sex: Male

DRUGS (8)
  1. ORAMORPH (EUROPE) [Suspect]
     Active Substance: MORPHINE SULFATE
     Indication: DYSPNOEA
     Dosage: 2 MG, Q4H
     Route: 048
  2. BOSENTAN. [Concomitant]
     Active Substance: BOSENTAN
     Indication: PULMONARY HYPERTENSION
     Route: 065
  3. PREDNISONE. [Concomitant]
     Active Substance: PREDNISONE
     Indication: PRODUCT USED FOR UNKNOWN INDICATION
     Dosage: 30 MG, DAILY
     Route: 065
  4. OXYGEN. [Concomitant]
     Active Substance: OXYGEN
     Indication: PRODUCT USED FOR UNKNOWN INDICATION
     Route: 065
     Dates: start: 201107
  5. OMEPRAZOLE. [Concomitant]
     Active Substance: OMEPRAZOLE
     Indication: PRODUCT USED FOR UNKNOWN INDICATION
     Dosage: 20 MG, DAILY
     Route: 065
  6. ACETYLCYSTEINE. [Concomitant]
     Active Substance: ACETYLCYSTEINE
     Indication: PRODUCT USED FOR UNKNOWN INDICATION
     Dosage: 600 MG, TID
     Route: 065
  7. ORAMORPH (EUROPE) [Suspect]
     Active Substance: MORPHINE SULFATE
     Indication: DYSPNOEA
     Dosage: 3 MG, Q4H
     Route: 048
  8. CODEINE [Concomitant]
     Active Substance: CODEINE
     Indication: PRODUCT USED FOR UNKNOWN INDICATION
     Dosage: 30 MG, BID
     Route: 065

REACTIONS (6)
  - Abdominal pain [Unknown]
  - Constipation [None]
  - Cough [None]
  - Condition aggravated [Unknown]
  - Off label use [Unknown]
  - Faecaloma [None]
